FAERS Safety Report 21101716 (Version 2)
Quarter: 2022Q3

REPORT INFORMATION
  Report Type: Spontaneous
  Country: US (occurrence: US)
  Receive Date: 20220719
  Receipt Date: 20220805
  Transmission Date: 20221027
  Serious: No
  Sender: FDA-Public Use
  Company Number: US-PFIZER INC-202200967065

PATIENT
  Age: 82 Year
  Sex: Female
  Weight: 70.31 kg

DRUGS (1)
  1. TESSALON [Suspect]
     Active Substance: BENZONATATE
     Dosage: UNK
     Dates: start: 20220712

REACTIONS (1)
  - Productive cough [Unknown]
